FAERS Safety Report 10589618 (Version 1)
Quarter: 2014Q4

REPORT INFORMATION
  Report Type: Spontaneous
  Country: TW (occurrence: None)
  Receive Date: 20141114
  Receipt Date: 20141114
  Transmission Date: 20150529
  Serious: Yes (Hospitalization)
  Sender: FDA-Public Use
  Company Number: TW-ZYDUS-005506

PATIENT
  Age: 41 Year
  Sex: Female

DRUGS (2)
  1. DULOXETINE (DULOXETINE) (DULOXETINE) [Suspect]
     Active Substance: DULOXETINE
     Indication: ANTIDEPRESSANT THERAPY
  2. MIRTAZAPINE (MIRTAZAPINE) [Suspect]
     Active Substance: MIRTAZAPINE
     Indication: ANTIDEPRESSANT THERAPY

REACTIONS (4)
  - Sleep disorder [None]
  - Arthralgia [None]
  - Myalgia [None]
  - Pain in extremity [None]
